FAERS Safety Report 12067252 (Version 1)
Quarter: 2016Q1

REPORT INFORMATION
  Report Type: Spontaneous
  Country: None (occurrence: None)
  Receive Date: 20160210
  Receipt Date: 20160210
  Transmission Date: 20160526
  Serious: No
  Sender: FDA-Public Use
  Company Number: None

PATIENT
  Age: 24 Year
  Sex: Female
  Weight: 92.99 kg

DRUGS (3)
  1. HAIRFINITY BIOTIN SUPPLEMENTS [Concomitant]
  2. JUNEL FE 1/20 [Concomitant]
     Active Substance: ETHINYL ESTRADIOL\NORETHINDRONE ACETATE
  3. JUNEL FE 1.5/30 [Suspect]
     Active Substance: ETHINYL ESTRADIOL\NORETHINDRONE ACETATE
     Indication: ENDOMETRIOSIS
     Dosage: 1.5/30 MG ONCE DAILY, TAKEN BY MOUTH
     Dates: start: 20160116, end: 20160209

REACTIONS (3)
  - Product quality issue [None]
  - Drug ineffective [None]
  - Vaginal haemorrhage [None]

NARRATIVE: CASE EVENT DATE: 20160116
